FAERS Safety Report 11859014 (Version 2)
Quarter: 2015Q4

REPORT INFORMATION
  Report Type: Spontaneous
  Country: BR (occurrence: BR)
  Receive Date: 20151222
  Receipt Date: 20151223
  Transmission Date: 20160305
  Serious: No
  Sender: FDA-Public Use
  Company Number: BR-PFIZER INC-2015438054

PATIENT
  Age: 53 Year
  Sex: Male

DRUGS (1)
  1. VIAGRA [Suspect]
     Active Substance: SILDENAFIL CITRATE
     Dosage: 50 MG, WEEKLY
     Route: 048
     Dates: start: 2014

REACTIONS (2)
  - Visual acuity reduced [Unknown]
  - Excessive cerumen production [Recovered/Resolved]
